FAERS Safety Report 10199500 (Version 1)
Quarter: 2014Q2

REPORT INFORMATION
  Report Type: Spontaneous
  Country: US (occurrence: US)
  Receive Date: 20140527
  Receipt Date: 20140527
  Transmission Date: 20141212
  Serious: Yes (Other)
  Sender: FDA-Public Use
  Company Number: US-TEVA-483653USA

PATIENT
  Age: 64 Year
  Sex: Female

DRUGS (1)
  1. PRAVASTATIN [Suspect]
     Indication: BLOOD CHOLESTEROL
     Dates: start: 2011, end: 201401

REACTIONS (2)
  - Movement disorder [Recovering/Resolving]
  - Pain in extremity [Recovering/Resolving]
